FAERS Safety Report 13658456 (Version 2)
Quarter: 2017Q3

REPORT INFORMATION
  Report Type: Spontaneous
  Country: US (occurrence: US)
  Receive Date: 20170616
  Receipt Date: 20170818
  Transmission Date: 20171127
  Serious: Yes (Other)
  Sender: FDA-Public Use
  Company Number: US-TEVA-778259ACC

PATIENT
  Age: 25 Year
  Sex: Female
  Weight: 57.2 kg

DRUGS (1)
  1. PARAGARD T 380A [Suspect]
     Active Substance: COPPER
     Indication: CONTRACEPTION
     Dates: start: 20170309, end: 20170608

REACTIONS (3)
  - Device dislocation [Recovered/Resolved with Sequelae]
  - Menorrhagia [Unknown]
  - Malaise [Unknown]

NARRATIVE: CASE EVENT DATE: 20170606
